FAERS Safety Report 18655379 (Version 2)
Quarter: 2021Q1

REPORT INFORMATION
  Report Type: Spontaneous
  Country: BE (occurrence: BE)
  Receive Date: 20201223
  Receipt Date: 20210121
  Transmission Date: 20210419
  Serious: Yes (Other)
  Sender: FDA-Public Use
  Company Number: NVSC2020BE334596

PATIENT
  Sex: Female

DRUGS (13)
  1. DONEPEZIL. [Suspect]
     Active Substance: DONEPEZIL
     Indication: AMNESIA
     Dosage: 5 MG, QD
     Route: 065
     Dates: start: 2019
  2. BEFACT FORTE [Concomitant]
     Indication: PRODUCT USED FOR UNKNOWN INDICATION
     Dosage: UNK
     Route: 065
  3. VESICARE [Concomitant]
     Active Substance: SOLIFENACIN SUCCINATE
     Indication: PRODUCT USED FOR UNKNOWN INDICATION
     Dosage: 5 MG
     Route: 065
     Dates: start: 20200624
  4. LEXOTAN [Concomitant]
     Active Substance: BROMAZEPAM
     Indication: PRODUCT USED FOR UNKNOWN INDICATION
     Dosage: 6 MG
     Route: 065
     Dates: start: 20200630
  5. STILNOCT [Concomitant]
     Active Substance: ZOLPIDEM TARTRATE
     Indication: PRODUCT USED FOR UNKNOWN INDICATION
     Dosage: 10 MG
     Route: 065
     Dates: start: 20200630
  6. PABA [Concomitant]
     Active Substance: AMINOBENZOIC ACID
     Indication: PRODUCT USED FOR UNKNOWN INDICATION
     Dosage: 500 MG
     Route: 065
  7. DONEPEZIL. [Suspect]
     Active Substance: DONEPEZIL
     Dosage: 5 MG
     Route: 065
     Dates: start: 202006
  8. NUROFEN [Concomitant]
     Active Substance: IBUPROFEN
     Indication: PAIN
     Dosage: 200 MG (IN CASE OF PAIN)
     Route: 065
  9. ACEROLA [Concomitant]
     Active Substance: ACEROLA
     Indication: PRODUCT USED FOR UNKNOWN INDICATION
     Dosage: 750 (UNIT NOT REPORTED)
     Route: 065
  10. LYSO [Concomitant]
     Indication: PRODUCT USED FOR UNKNOWN INDICATION
     Dosage: 600 (UNIT NOT REPORTED)
     Route: 065
  11. DONEPEZIL. [Suspect]
     Active Substance: DONEPEZIL
     Dosage: 5 MG, QD
     Route: 065
     Dates: start: 202007
  12. TENORETIC [Concomitant]
     Active Substance: ATENOLOL\CHLORTHALIDONE
     Indication: PRODUCT USED FOR UNKNOWN INDICATION
     Dosage: 50 MG
     Route: 065
     Dates: start: 20200630
  13. VENTOLIN [Concomitant]
     Active Substance: ALBUTEROL SULFATE
     Indication: PRODUCT USED FOR UNKNOWN INDICATION
     Dosage: 100 (UNIT NOT REPORTED)
     Route: 065
     Dates: start: 20200701

REACTIONS (9)
  - Amnesia [Unknown]
  - Motor dysfunction [Unknown]
  - Fatigue [Recovered/Resolved]
  - Mood altered [Unknown]
  - Movement disorder [Recovered/Resolved]
  - Depression [Recovered/Resolved]
  - Sleep disorder [Recovered/Resolved]
  - Drug intolerance [Unknown]
  - Suicidal ideation [Unknown]

NARRATIVE: CASE EVENT DATE: 202006
